FAERS Safety Report 4321860-9 (Version None)
Quarter: 2004Q1

REPORT INFORMATION
  Report Type: 
  Country: None (occurrence: None)
  Receive Date: 20040322
  Receipt Date: 20040322
  Transmission Date: 20041129
  Serious: Yes (Hospitalization)
  Sender: FDA-Public Use
  Company Number: None

PATIENT
  Age: 75 Year
  Sex: Female
  Weight: 68.0396 kg

DRUGS (1)
  1. FORTEO [Suspect]
     Indication: MUSCULOSKELETAL PAIN
     Dates: start: 20040301, end: 20040307

REACTIONS (1)
  - MEDICATION ERROR [None]
